FAERS Safety Report 18277994 (Version 1)
Quarter: 2020Q3

REPORT INFORMATION
  Report Type: Spontaneous
  Country: SE (occurrence: SE)
  Receive Date: 20200917
  Receipt Date: 20200917
  Transmission Date: 20201103
  Serious: Yes (Other)
  Sender: FDA-Public Use
  Company Number: SE-MYLANLABS-2020M1078357

PATIENT
  Age: 59 Year
  Sex: Male

DRUGS (2)
  1. LOSARTAN. [Suspect]
     Active Substance: LOSARTAN
     Indication: HYPERTENSION
     Dosage: 50 MILLIGRAM, QD
     Route: 048
  2. LOSARTAN. [Suspect]
     Active Substance: LOSARTAN
     Dosage: 100 MILLIGRAM, QD
     Route: 048
     Dates: start: 20200424, end: 20200720

REACTIONS (1)
  - Chest discomfort [Recovered/Resolved]
